FAERS Safety Report 13802842 (Version 2)
Quarter: 2017Q4

REPORT INFORMATION
  Report Type: Spontaneous
  Country: US (occurrence: US)
  Receive Date: 20170727
  Receipt Date: 20171103
  Transmission Date: 20180320
  Serious: No
  Sender: FDA-Public Use
  Company Number: US-009507513-1707USA002029

PATIENT
  Age: 63 Year
  Sex: Male
  Weight: 80 kg

DRUGS (18)
  1. METOPROLOL TARTRATE. [Concomitant]
     Active Substance: METOPROLOL TARTRATE
     Dosage: 50 MG, Q12H
  2. ACETAMINOPHEN. [Concomitant]
     Active Substance: ACETAMINOPHEN
     Indication: HEADACHE
     Dosage: 325 MG AS NEEDED
  3. REBETOL [Suspect]
     Active Substance: RIBAVIRIN
     Indication: HEPATITIS C
     Dosage: 600 MG, BID
     Route: 048
     Dates: start: 201409
  4. WARFARIN [Interacting]
     Active Substance: WARFARIN
     Dosage: 52.5 MG TO 77.5 MG
  5. OCUVITE [Concomitant]
     Active Substance: VITAMINS
     Indication: VITAMIN SUPPLEMENTATION
  6. REBETOL [Interacting]
     Active Substance: RIBAVIRIN
     Dosage: DOSE DECREASED TO 600 MG IN THE MORNING AND 400 MG IN THE EVENING
     Route: 048
     Dates: start: 201409
  7. SOFOSBUVIR [Interacting]
     Active Substance: SOFOSBUVIR
     Indication: HEPATITIS C
     Dosage: 400 MG, QD
     Route: 048
     Dates: start: 201409
  8. WARFARIN [Interacting]
     Active Substance: WARFARIN
     Dosage: 65 MG, QW
  9. SAW PALMETTO [Concomitant]
     Active Substance: HERBALS\SAW PALMETTO
     Dosage: 1 TABLET, QD
     Route: 048
  10. TURMERIC [Concomitant]
     Active Substance: HERBALS\TURMERIC
     Dosage: 1 CAPSULE, TID
  11. WARFARIN [Interacting]
     Active Substance: WARFARIN
     Indication: ANTICOAGULANT THERAPY
     Dosage: 52.5 MG
  12. WARFARIN [Interacting]
     Active Substance: WARFARIN
     Dosage: 70 MG, QW UNTIL 18 WEEKS AFTER COMPLETION OF HCV REGIMEN
  13. OCUVITE [Concomitant]
     Active Substance: VITAMINS
     Indication: MINERAL SUPPLEMENTATION
     Dosage: UNK, QD
  14. ASCORBIC ACID. [Concomitant]
     Active Substance: ASCORBIC ACID
     Dosage: 1500 MG, QD
  15. OMEPRAZOLE. [Concomitant]
     Active Substance: OMEPRAZOLE
     Dosage: 20 MG, QD
     Dates: start: 2014
  16. DIAZEPAM. [Concomitant]
     Active Substance: DIAZEPAM
     Dosage: 5 MG AT BEDTIME AS NEEDED
  17. GABAPENTIN. [Concomitant]
     Active Substance: GABAPENTIN
     Dosage: 600 MG, BID
  18. WARFARIN [Interacting]
     Active Substance: WARFARIN
     Dosage: 52.5 MG, UNK

REACTIONS (3)
  - Drug interaction [Unknown]
  - International normalised ratio decreased [Recovering/Resolving]
  - Anaemia [Unknown]
